FAERS Safety Report 25465977 (Version 1)
Quarter: 2025Q2

REPORT INFORMATION
  Report Type: Spontaneous
  Country: US (occurrence: US)
  Receive Date: 20250623
  Receipt Date: 20250623
  Transmission Date: 20250717
  Serious: No
  Sender: TOLMAR
  Company Number: CID000000000000321

PATIENT

DRUGS (3)
  1. ELIGARD [Suspect]
     Active Substance: LEUPROLIDE ACETATE
     Indication: Product used for unknown indication
     Dosage: NDC: 62935-461-50?GTIN: 00362935461500?SN: 6678892713635?VIAL NOT ADMINISTERED
     Route: 065
  2. ELIGARD [Suspect]
     Active Substance: LEUPROLIDE ACETATE
     Dosage: VIAL ADMINISTERED
     Route: 065
  3. DEVICE [Suspect]
     Active Substance: DEVICE
     Indication: Product used for unknown indication

REACTIONS (2)
  - Intercepted product preparation error [Unknown]
  - Device leakage [Unknown]
